FAERS Safety Report 19594544 (Version 1)
Quarter: 2021Q3

REPORT INFORMATION
  Report Type: Other
  Country: FR (occurrence: FR)
  Receive Date: 20210722
  Receipt Date: 20210722
  Transmission Date: 20211014
  Serious: Yes (Hospitalization)
  Sender: FDA-Public Use
  Company Number: FR-ROCHE-2875984

PATIENT
  Age: 59 Year
  Sex: Male

DRUGS (4)
  1. IPHOSPHAMIDE [Suspect]
     Active Substance: IFOSFAMIDE
     Indication: RICHTER^S SYNDROME
     Route: 065
  2. ETOPOSIDE. [Suspect]
     Active Substance: ETOPOSIDE
     Indication: RICHTER^S SYNDROME
     Route: 065
  3. RITUXIMAB. [Suspect]
     Active Substance: RITUXIMAB
     Indication: RICHTER^S SYNDROME
     Route: 065
  4. CARBOPLATIN. [Suspect]
     Active Substance: CARBOPLATIN
     Indication: RICHTER^S SYNDROME
     Route: 065

REACTIONS (1)
  - COVID-19 [Recovered/Resolved]
